FAERS Safety Report 24585093 (Version 6)
Quarter: 2025Q3

REPORT INFORMATION
  Report Type: Report from Study
  Country: BR (occurrence: BR)
  Receive Date: 20241106
  Receipt Date: 20250812
  Transmission Date: 20251020
  Serious: Yes (Hospitalization, Other)
  Sender: AMGEN
  Company Number: BR-AMGEN-BRASL2024162606

PATIENT
  Age: 56 Year
  Sex: Female

DRUGS (7)
  1. VECTIBIX [Suspect]
     Active Substance: PANITUMUMAB
     Indication: Colorectal cancer metastatic
     Route: 040
     Dates: start: 20240807, end: 20250416
  2. CAPECITABINE [Suspect]
     Active Substance: CAPECITABINE
     Indication: Product used for unknown indication
     Route: 065
     Dates: start: 2024
  3. OXALIPLATIN [Suspect]
     Active Substance: OXALIPLATIN
     Indication: Colorectal cancer metastatic
     Route: 065
  4. GLIFAGE [Concomitant]
     Active Substance: METFORMIN HYDROCHLORIDE
     Dosage: 1 DOSAGE FORM, QHS (1 TABLET AT NIGHT)
  5. Organoneuro Cerebral [Concomitant]
     Indication: Product used for unknown indication
     Route: 065
  6. METAMIZOLE [Concomitant]
     Active Substance: METAMIZOLE
  7. ASPIRIN [Concomitant]
     Active Substance: ASPIRIN

REACTIONS (30)
  - Neuropathy peripheral [Recovering/Resolving]
  - Device related thrombosis [Recovering/Resolving]
  - Pneumonia [Recovering/Resolving]
  - Mouth ulceration [Recovering/Resolving]
  - Eye inflammation [Recovered/Resolved]
  - Angular cheilitis [Recovering/Resolving]
  - Paraesthesia [Recovering/Resolving]
  - Dyspnoea [Recovering/Resolving]
  - Diarrhoea [Recovered/Resolved]
  - Asthenia [Recovering/Resolving]
  - Memory impairment [Recovering/Resolving]
  - Speech disorder [Recovering/Resolving]
  - Colostomy bag user [Recovering/Resolving]
  - Musculoskeletal stiffness [Recovering/Resolving]
  - Chest discomfort [Recovering/Resolving]
  - Head discomfort [Recovering/Resolving]
  - Dysphagia [Recovering/Resolving]
  - Hypoaesthesia [Recovered/Resolved]
  - Platelet count decreased [Recovering/Resolving]
  - Swollen tongue [Recovering/Resolving]
  - Swelling face [Recovering/Resolving]
  - Paraesthesia oral [Recovering/Resolving]
  - Malaise [Recovering/Resolving]
  - Somnolence [Recovering/Resolving]
  - Mental disorder [Recovering/Resolving]
  - Chromaturia [Recovered/Resolved]
  - Anxiety [Recovered/Resolved]
  - Fatigue [Unknown]
  - Speech disorder [Unknown]
  - Drug ineffective [Unknown]

NARRATIVE: CASE EVENT DATE: 20240101
